FAERS Safety Report 5275967-2 (Version None)
Quarter: 2007Q1

REPORT INFORMATION
  Report Type: 
  Country: None (occurrence: None)
  Receive Date: 20070326
  Receipt Date: 20070313
  Transmission Date: 20070707
  Serious: Yes (Hospitalization)
  Sender: FDA-Public Use
  Company Number: FR-ROCHE-487386

PATIENT
  Age: 69 Year
  Sex: Male

DRUGS (2)
  1. RIBAVIRIN [Suspect]
     Indication: HEPATITIS C
     Route: 065
  2. PEG-INTERFERON ALPHA 2B [Suspect]
     Indication: HEPATITIS C
     Route: 065

REACTIONS (1)
  - PANOPHTHALMITIS [None]
